FAERS Safety Report 4393415-1 (Version None)
Quarter: 2004Q3

REPORT INFORMATION
  Report Type: 
  Country: None (occurrence: None)
  Receive Date: 20040707
  Receipt Date: 20040707
  Transmission Date: 20050211
  Serious: Yes (Hospitalization, Other)
  Sender: FDA-Public Use
  Company Number: None

PATIENT
  Age: 40 Year
  Sex: Female
  Weight: 81.6475 kg

DRUGS (1)
  1. PAXIL [Suspect]
     Dosage: DAILY

REACTIONS (5)
  - DEHYDRATION [None]
  - DIFFICULTY IN WALKING [None]
  - DIZZINESS [None]
  - IMPAIRED DRIVING ABILITY [None]
  - TREATMENT NONCOMPLIANCE [None]
